FAERS Safety Report 5400757-7 (Version None)
Quarter: 2007Q3

REPORT INFORMATION
  Report Type: 
  Country: None (occurrence: None)
  Receive Date: 20070730
  Receipt Date: 20070702
  Transmission Date: 20080115
  Serious: Yes (Hospitalization, Other)
  Sender: FDA-Public Use
  Company Number: US-PFIZER INC-2007055427

PATIENT
  Sex: Female
  Weight: 73.9 kg

DRUGS (4)
  1. BEXTRA [Suspect]
     Indication: PAIN
     Dates: start: 20040217, end: 20040317
  2. VIOXX [Suspect]
     Indication: OSTEOARTHRITIS
     Dates: start: 20040312
  3. PREVACID [Concomitant]
  4. EFFEXOR [Concomitant]
     Dates: start: 20031108, end: 20040517

REACTIONS (1)
  - ISCHAEMIC STROKE [None]
